FAERS Safety Report 11294970 (Version 1)
Quarter: 2015Q3

REPORT INFORMATION
  Report Type: Spontaneous
  Country: US (occurrence: None)
  Receive Date: 20150722
  Receipt Date: 20150722
  Transmission Date: 20151125
  Serious: Yes (Disabling)
  Sender: FDA-Public Use
  Company Number: None

PATIENT
  Age: 33 Year
  Sex: Female
  Weight: 54 kg

DRUGS (3)
  1. CLINDAMYCIN [Suspect]
     Active Substance: CLINDAMYCIN\CLINDAMYCIN PHOSPHATE
     Indication: MASTITIS
     Dosage: 1  TAKEN BY MOUTH
     Route: 048
     Dates: start: 20150611, end: 20150625
  2. FLAGYL [Concomitant]
     Active Substance: METRONIDAZOLE\METRONIDAZOLE HYDROCHLORIDE
  3. POSTNATAL VITAMINS [Concomitant]

REACTIONS (9)
  - Clostridium test positive [None]
  - Diarrhoea [None]
  - Pyrexia [None]
  - Gastrointestinal disorder [None]
  - Chills [None]
  - Headache [None]
  - Quality of life decreased [None]
  - Vomiting [None]
  - Weight decreased [None]

NARRATIVE: CASE EVENT DATE: 20150611
